FAERS Safety Report 14497147 (Version 2)
Quarter: 2018Q1

REPORT INFORMATION
  Report Type: Report from Study
  Country: None (occurrence: US)
  Receive Date: 20180207
  Receipt Date: 20180221
  Transmission Date: 20180509
  Serious: Yes (Other)
  Sender: FDA-Public Use
  Company Number: US-ABBVIE-18K-163-2246230-00

PATIENT
  Age: 49 Year
  Sex: Male
  Weight: 118.04 kg

DRUGS (14)
  1. ROXICODONE [Concomitant]
     Active Substance: OXYCODONE HYDROCHLORIDE
     Indication: BREAKTHROUGH PAIN
  2. LEVEMIR [Concomitant]
     Active Substance: INSULIN DETEMIR
     Indication: TYPE 2 DIABETES MELLITUS
  3. LISINOPRIL HIDROCLOROTIAZIDA [Concomitant]
     Active Substance: HYDROCHLOROTHIAZIDE\LISINOPRIL
     Indication: HYPERTENSION
  4. AMLODIPINE [Concomitant]
     Active Substance: AMLODIPINE BESYLATE
     Indication: HYPERTENSION
  5. NOVOLOG [Concomitant]
     Active Substance: INSULIN ASPART
     Indication: TYPE 2 DIABETES MELLITUS
  6. DEXILANT [Concomitant]
     Active Substance: DEXLANSOPRAZOLE
     Indication: GASTROOESOPHAGEAL REFLUX DISEASE
  7. HUMIRA [Suspect]
     Active Substance: ADALIMUMAB
     Indication: COLITIS ULCERATIVE
  8. METOPROLOL. [Concomitant]
     Active Substance: METOPROLOL
     Indication: HYPERTENSION
  9. FLEXERIL [Concomitant]
     Active Substance: CYCLOBENZAPRINE HYDROCHLORIDE
     Indication: MUSCLE RELAXANT THERAPY
  10. LYRICA [Concomitant]
     Active Substance: PREGABALIN
     Indication: NEURALGIA
  11. NITROGLYCERIN. [Concomitant]
     Active Substance: NITROGLYCERIN
     Indication: CHEST PAIN
  12. HUMIRA [Suspect]
     Active Substance: ADALIMUMAB
     Indication: RHEUMATOID ARTHRITIS
     Route: 058
     Dates: start: 20180105, end: 20180105
  13. MS CONTIN [Concomitant]
     Active Substance: MORPHINE SULFATE
     Indication: BACK PAIN
  14. RANEXA [Concomitant]
     Active Substance: RANOLAZINE
     Indication: CHEST PAIN

REACTIONS (8)
  - Nasal discharge discolouration [Recovered/Resolved]
  - Foot deformity [Recovering/Resolving]
  - Osteoarthritis [Not Recovered/Not Resolved]
  - Throat irritation [Recovered/Resolved]
  - Staphylococcal osteomyelitis [Recovering/Resolving]
  - Nasal congestion [Unknown]
  - Epistaxis [Recovered/Resolved]
  - Osteoporosis [Recovering/Resolving]

NARRATIVE: CASE EVENT DATE: 2018
